FAERS Safety Report 10064798 (Version 1)
Quarter: 2014Q2

REPORT INFORMATION
  Report Type: Report from Study
  Country: CA (occurrence: CA)
  Receive Date: 20140408
  Receipt Date: 20140408
  Transmission Date: 20141212
  Serious: Yes (Other)
  Sender: FDA-Public Use
  Company Number: CA-JNJFOC-20140402291

PATIENT
  Age: 30 Year
  Sex: Female
  Weight: 53 kg

DRUGS (5)
  1. REMICADE [Suspect]
     Indication: CROHN^S DISEASE
     Route: 042
     Dates: start: 20091001
  2. HYDROCORTISONE [Concomitant]
     Indication: PREMEDICATION
     Route: 042
  3. TYLENOL [Concomitant]
     Indication: PREMEDICATION
     Route: 048
  4. GRAVOL [Concomitant]
     Indication: PREMEDICATION
     Route: 065
  5. BENADRYL [Concomitant]
     Indication: PREMEDICATION
     Route: 065

REACTIONS (1)
  - Herpes zoster [Unknown]
